FAERS Safety Report 20940363 (Version 1)
Quarter: 2022Q2

REPORT INFORMATION
  Report Type: Spontaneous
  Country: DE (occurrence: DE)
  Receive Date: 20220609
  Receipt Date: 20220609
  Transmission Date: 20220721
  Serious: Yes (Other)
  Sender: FDA-Public Use
  Company Number: DE-NOVARTISPH-NVSC2022DE128334

PATIENT
  Sex: Male

DRUGS (10)
  1. ACETAMINOPHEN [Interacting]
     Active Substance: ACETAMINOPHEN
     Indication: Product used for unknown indication
     Dosage: 500 MG, PRN (PERCUTANEOUS ENDOSCOPIC GASTROSTOMY TUBE)
     Route: 065
  2. FOLIC ACID [Interacting]
     Active Substance: FOLIC ACID
     Indication: Product used for unknown indication
     Dosage: UNK
     Route: 065
  3. RIVOTRIL [Interacting]
     Active Substance: CLONAZEPAM
     Indication: Epilepsy
     Dosage: UNK
     Route: 065
  4. PHENYTOIN [Interacting]
     Active Substance: PHENYTOIN
     Indication: Epilepsy
     Dosage: 100 MG, Q12H (TABLET)
     Route: 065
  5. PHENYTOIN [Interacting]
     Active Substance: PHENYTOIN
     Dosage: UNK
     Route: 042
  6. AZITHROMYCIN [Concomitant]
     Active Substance: AZITHROMYCIN
     Indication: Infection
     Dosage: UNK
     Route: 065
  7. VITAMIN B12 [Concomitant]
     Active Substance: CYANOCOBALAMIN
     Indication: Product used for unknown indication
     Dosage: UNK
     Route: 065
  8. VIMPAT [Concomitant]
     Active Substance: LACOSAMIDE
     Indication: Epilepsy
     Dosage: UNK (PERCUTANEOUS ENDOSCOPIC GASTROSTOMY TUBE)
     Route: 065
  9. PIPERACILLIN [Concomitant]
     Active Substance: PIPERACILLIN
     Indication: Infection
     Dosage: UNK
     Route: 065
  10. BRIVIACT [Concomitant]
     Active Substance: BRIVARACETAM
     Indication: Epilepsy
     Dosage: UNK (PERCUTANEOUS ENDOSCOPIC GASTROSTOMY TUBE)
     Route: 065

REACTIONS (3)
  - Seizure [Unknown]
  - Anticonvulsant drug level below therapeutic [Unknown]
  - Drug interaction [Unknown]
